FAERS Safety Report 12601376 (Version 1)
Quarter: 2016Q3

REPORT INFORMATION
  Report Type: Spontaneous
  Country: US (occurrence: US)
  Receive Date: 20160728
  Receipt Date: 20160728
  Transmission Date: 20161109
  Serious: Yes (Other)
  Sender: FDA-Public Use
  Company Number: US-TEVA-680492ACC

PATIENT
  Age: 55 Year
  Sex: Female
  Weight: 75.36 kg

DRUGS (2)
  1. ESTRADIOL PROGESTERONE [Concomitant]
     Indication: ANGIOPATHY
  2. PARAGARD T 380A [Suspect]
     Active Substance: COPPER
     Indication: CONTRACEPTION
     Dates: start: 20090904

REACTIONS (1)
  - Device dislocation [Not Recovered/Not Resolved]

NARRATIVE: CASE EVENT DATE: 20160715
